FAERS Safety Report 24652777 (Version 2)
Quarter: 2024Q4

REPORT INFORMATION
  Report Type: Report from Study
  Country: US (occurrence: US)
  Receive Date: 20241122
  Receipt Date: 20241221
  Transmission Date: 20250114
  Serious: Yes (Hospitalization, Other)
  Sender: ALEXION PHARMACEUTICALS
  Company Number: US-AstraZeneca-CH-00748710A

PATIENT

DRUGS (5)
  1. TEZEPELUMAB [Suspect]
     Active Substance: TEZEPELUMAB
     Dosage: 210 UNK, QMONTH
  2. TEZEPELUMAB [Suspect]
     Active Substance: TEZEPELUMAB
  3. TEZEPELUMAB [Suspect]
     Active Substance: TEZEPELUMAB
  4. TEZEPELUMAB [Suspect]
     Active Substance: TEZEPELUMAB
  5. FASENRA [Suspect]
     Active Substance: BENRALIZUMAB

REACTIONS (3)
  - Pulmonary function test decreased [Unknown]
  - Lower limb fracture [Unknown]
  - Arthralgia [Unknown]
